FAERS Safety Report 26040907 (Version 1)
Quarter: 2025Q4

REPORT INFORMATION
  Report Type: Spontaneous
  Country: US (occurrence: US)
  Receive Date: 20251113
  Receipt Date: 20251113
  Transmission Date: 20260117
  Serious: Yes (Other)
  Sender: COOPERSURGICAL
  Company Number: US-COOPERSURGICAL, INC.-2025CPS007791

PATIENT
  Sex: Female
  Weight: 125.17 kg

DRUGS (1)
  1. PARAGARD T 380A [Suspect]
     Active Substance: COPPER
     Indication: Contraception
     Dosage: UNK
     Route: 015
     Dates: start: 20120101, end: 20220331

REACTIONS (26)
  - Hysterectomy [Recovered/Resolved]
  - Salpingectomy [Recovered/Resolved]
  - Surgery [Recovered/Resolved]
  - Peritoneal adhesions [Recovered/Resolved]
  - Uterine leiomyoma [Recovered/Resolved]
  - Cervical dysplasia [Recovered/Resolved]
  - Umbilical hernia [Not Recovered/Not Resolved]
  - Reproductive complication associated with device [Not Recovered/Not Resolved]
  - Endometritis [Recovered/Resolved]
  - Uterine disorder [Recovered/Resolved]
  - Device breakage [Recovered/Resolved]
  - Foreign body in reproductive tract [Recovered/Resolved]
  - Complication of device removal [Recovered/Resolved]
  - Adenomyosis [Recovered/Resolved]
  - Cervicitis [Recovered/Resolved]
  - Procedural pain [Recovered/Resolved]
  - Emotional distress [Unknown]
  - Endometriosis [Recovered/Resolved]
  - Incision site pain [Unknown]
  - Dysmenorrhoea [Recovered/Resolved]
  - Abnormal uterine bleeding [Recovered/Resolved]
  - Muscle spasms [Recovering/Resolving]
  - Device use issue [Recovered/Resolved]
  - Off label use [Unknown]
  - Pain [Unknown]
  - Heavy menstrual bleeding [Recovered/Resolved]

NARRATIVE: CASE EVENT DATE: 20220101
